FAERS Safety Report 21693148 (Version 1)
Quarter: 2022Q4

REPORT INFORMATION
  Report Type: Spontaneous
  Country: CN (occurrence: None)
  Receive Date: 20221207
  Receipt Date: 20221207
  Transmission Date: 20230112
  Serious: Yes (Other)
  Sender: FDA-Public Use
  Company Number: CN-ROCHE-3231430

PATIENT
  Age: 55 Year
  Sex: Male
  Weight: 80 kg

DRUGS (24)
  1. MABTHERA [Suspect]
     Active Substance: RITUXIMAB
     Indication: Follicular lymphoma
     Dosage: R2CHOP, 04-JUL-2019, 25-JUL-2019, 19-AUG-2019, 09-SEP-2022
     Route: 065
  2. MABTHERA [Suspect]
     Active Substance: RITUXIMAB
     Dosage: R2CHOP, 30-SEP-2019, 21-OCT-2019
     Route: 065
  3. MABTHERA [Suspect]
     Active Substance: RITUXIMAB
     Dosage: R2, 12-NOV-2019, 03-DEC-2019
     Route: 065
  4. GAZYVA [Suspect]
     Active Substance: OBINUTUZUMAB
     Indication: Follicular lymphoma
     Dosage: G-CHOP: 24-MAY-2022, 14-JUN-2022, 07-JUL-2022, 28-JUL-2022, 18-AUG-2022, 08-SEP-2022
     Route: 065
  5. GAZYVA [Suspect]
     Active Substance: OBINUTUZUMAB
     Dosage: THERAPY START DATE 07-NOV-2022
     Route: 065
  6. LENALIDOMIDE [Concomitant]
     Active Substance: LENALIDOMIDE
     Indication: Follicular lymphoma
     Dosage: R2CHOP, 04-JUL-2019, 25-JUL-2019, 19-AUG-2019, 09-SEP-2022
  7. LENALIDOMIDE [Concomitant]
     Active Substance: LENALIDOMIDE
     Dosage: R2CHOP, 30-SEP-2019, 21-OCT-2019
  8. LENALIDOMIDE [Concomitant]
     Active Substance: LENALIDOMIDE
     Dosage: R2, 12-NOV-2019, 03-DEC-2019
  9. CYCLOPHOSPHAMIDE [Concomitant]
     Active Substance: CYCLOPHOSPHAMIDE
     Indication: Follicular lymphoma
     Dosage: R2CHOP, 04-JUL-2019, 25-JUL-2019, 19-AUG-2019, 09-SEP-2022
     Route: 065
  10. CYCLOPHOSPHAMIDE [Concomitant]
     Active Substance: CYCLOPHOSPHAMIDE
     Dosage: R2CHOP, 30-SEP-2019, 21-OCT-2019
     Route: 065
  11. CYCLOPHOSPHAMIDE [Concomitant]
     Active Substance: CYCLOPHOSPHAMIDE
     Dosage: G-CHOP: 24-MAY-2022, 14-JUN-2022, 07-JUL-2022, 28-JUL-2022, 18-AUG-2022, 08-SEP-2022
     Route: 065
  12. VINDESINE [Concomitant]
     Active Substance: VINDESINE
     Indication: Follicular lymphoma
     Dosage: R2CHOP, 04-JUL-2019, 25-JUL-2019, 19-AUG-2019, 09-SEP-2022
     Route: 065
  13. VINDESINE [Concomitant]
     Active Substance: VINDESINE
     Dosage: R2CHOP, 30-SEP-2019, 21-OCT-2019
     Route: 065
  14. VINDESINE [Concomitant]
     Active Substance: VINDESINE
     Dosage: G-CHOP: 24-MAY-2022, 14-JUN-2022, 07-JUL-2022, 28-JUL-2022, 18-AUG-2022, 08-SEP-2022
     Route: 065
  15. EPIRUBICIN [Concomitant]
     Active Substance: EPIRUBICIN
     Indication: Follicular lymphoma
     Dosage: R2CHOP, 04-JUL-2019, 25-JUL-2019, 19-AUG-2019, 09-SEP-2022
     Route: 065
  16. EPIRUBICIN [Concomitant]
     Active Substance: EPIRUBICIN
     Dosage: R2CHOP, 30-SEP-2019, 21-OCT-2019
     Route: 065
  17. EPIRUBICIN [Concomitant]
     Active Substance: EPIRUBICIN
     Dosage: G-CHOP: 24-MAY-2022, 14-JUN-2022, 07-JUL-2022, 28-JUL-2022, 18-AUG-2022, 08-SEP-2022
     Route: 065
  18. DEXAMETHASONE [Concomitant]
     Active Substance: DEXAMETHASONE
     Indication: Follicular lymphoma
     Dosage: R2CHOP, 04-JUL-2019, 25-JUL-2019, 19-AUG-2019, 09-SEP-2022
     Route: 065
  19. DEXAMETHASONE [Concomitant]
     Active Substance: DEXAMETHASONE
     Dosage: R2CHOP, 30-SEP-2019, 21-OCT-2019
     Route: 065
  20. DEXAMETHASONE [Concomitant]
     Active Substance: DEXAMETHASONE
     Dosage: G-CHOP: 24-MAY-2022, 14-JUN-2022, 07-JUL-2022, 28-JUL-2022, 18-AUG-2022, 08-SEP-2022
     Route: 065
  21. AMPHOTERICIN B [Concomitant]
     Active Substance: AMPHOTERICIN B
     Indication: Meningitis cryptococcal
     Route: 065
     Dates: start: 2020
  22. FLUCYTOSINE [Concomitant]
     Active Substance: FLUCYTOSINE
     Indication: Meningitis cryptococcal
     Route: 065
     Dates: start: 2020
  23. FLUCONAZOLE [Concomitant]
     Active Substance: FLUCONAZOLE
     Indication: Meningitis cryptococcal
     Route: 065
     Dates: start: 2020
  24. VORICONAZOLE [Concomitant]
     Active Substance: VORICONAZOLE
     Indication: Meningitis cryptococcal
     Route: 048
     Dates: start: 2020, end: 202108

REACTIONS (5)
  - Pneumonia [Unknown]
  - Brain herniation [Unknown]
  - Granulocyte count decreased [Unknown]
  - Pyrexia [Unknown]
  - Immunoglobulins decreased [Unknown]

NARRATIVE: CASE EVENT DATE: 20190901
